FAERS Safety Report 10641424 (Version 4)
Quarter: 2015Q1

REPORT INFORMATION
  Report Type: Report from Study
  Country: NL (occurrence: NL)
  Receive Date: 20141209
  Receipt Date: 20150119
  Transmission Date: 20150720
  Serious: Yes (Hospitalization)
  Sender: FDA-Public Use
  Company Number: PHHO2014NL016045

PATIENT
  Age: 7 Year
  Sex: Female
  Weight: 26.1 kg

DRUGS (8)
  1. PREDNISOLON [Concomitant]
     Active Substance: PREDNISOLONE
  2. COTRIMOXAZOLE [Concomitant]
     Active Substance: SULFAMETHOXAZOLE\TRIMETHOPRIM
  3. VINCRISTINE [Suspect]
     Active Substance: VINCRISTINE
  4. DAUNORUBICIN [Concomitant]
     Active Substance: DAUNORUBICIN
  5. CGP 57148B [Suspect]
     Active Substance: IMATINIB MESYLATE
     Indication: ACUTE LYMPHOCYTIC LEUKAEMIA
     Dosage: 300 MG, QD (PER DAY)
     Route: 048
     Dates: start: 20141030, end: 20141110
  6. GRANISETRON [Concomitant]
     Active Substance: GRANISETRON
  7. MACROGOL [Concomitant]
     Active Substance: POLYETHYLENE GLYCOLS
  8. CIPROXIN                                /DEN/ [Concomitant]
     Active Substance: CIPROFLOXACIN

REACTIONS (3)
  - Constipation [Recovered/Resolved]
  - Subileus [Recovered/Resolved]
  - Fanconi syndrome acquired [Recovered/Resolved]

NARRATIVE: CASE EVENT DATE: 20141103
